FAERS Safety Report 8847588 (Version 2)
Quarter: 2013Q2

REPORT INFORMATION
  Report Type: Spontaneous
  Country: US (occurrence: US)
  Receive Date: 20121018
  Receipt Date: 20130507
  Transmission Date: 20140414
  Serious: No
  Sender: FDA-Public Use
  Company Number: US-B.I. PHARMACEUTICALS,INC./RIDGEFIELD-2012-BP-25771BP

PATIENT
  Age: 65 Year
  Sex: Male
  Weight: 83.01 kg

DRUGS (9)
  1. TRADJENTA [Suspect]
     Indication: TYPE 2 DIABETES MELLITUS
     Dosage: 5 MG
     Route: 048
     Dates: start: 20120730
  2. SIMVASTATIN [Concomitant]
     Dosage: 40 MG
     Route: 048
     Dates: end: 20121011
  3. PRAVASTATIN [Concomitant]
     Dosage: 20 MG
     Dates: start: 20130107, end: 20130128
  4. RED YEAST RICE [Concomitant]
  5. COQ-10 [Concomitant]
  6. HCTZ [Concomitant]
     Indication: HYPERTENSION
     Dosage: 25 MG
  7. LOSARTAN [Concomitant]
     Indication: HYPERTENSION
     Dosage: 100 MG
  8. ALLOPURINOL [Concomitant]
     Indication: GOUT
     Dosage: 300 MG
     Dates: start: 20120228
  9. DOXAZOSIN [Concomitant]
     Indication: HYPERTENSION
     Dosage: 2 MG

REACTIONS (2)
  - Myalgia [Recovered/Resolved]
  - Therapeutic response unexpected [Unknown]
